FAERS Safety Report 26109616 (Version 1)
Quarter: 2025Q4

REPORT INFORMATION
  Report Type: Spontaneous
  Country: US (occurrence: US)
  Receive Date: 20251201
  Receipt Date: 20251201
  Transmission Date: 20260118
  Serious: No
  Sender: PFIZER
  Company Number: US-PFIZER INC-202500184191

PATIENT
  Age: 69 Year
  Sex: Female
  Weight: 73.03 kg

DRUGS (2)
  1. LITFULO [Suspect]
     Active Substance: RITLECITINIB TOSYLATE
     Indication: Alopecia areata
     Dosage: 50 MG, 1X/DAY
  2. LITFULO [Suspect]
     Active Substance: RITLECITINIB TOSYLATE
     Indication: Androgenetic alopecia

REACTIONS (4)
  - Headache [Unknown]
  - Migraine [Unknown]
  - Nausea [Unknown]
  - Off label use [Unknown]
